FAERS Safety Report 24979199 (Version 1)
Quarter: 2025Q1

REPORT INFORMATION
  Report Type: Spontaneous
  Country: US (occurrence: US)
  Receive Date: 20250218
  Receipt Date: 20250218
  Transmission Date: 20250409
  Serious: No
  Sender: ELI LILLY AND COMPANY
  Company Number: US-ELI_LILLY_AND_COMPANY-US202502011116

PATIENT
  Age: 49 Year
  Sex: Male

DRUGS (8)
  1. MOUNJARO [Suspect]
     Active Substance: TIRZEPATIDE
     Indication: Weight control
     Route: 058
     Dates: start: 2024
  2. MOUNJARO [Suspect]
     Active Substance: TIRZEPATIDE
     Indication: Weight control
     Route: 058
     Dates: start: 2024
  3. MOUNJARO [Suspect]
     Active Substance: TIRZEPATIDE
     Indication: Weight control
     Route: 058
     Dates: start: 2024
  4. MOUNJARO [Suspect]
     Active Substance: TIRZEPATIDE
     Indication: Weight control
     Route: 058
     Dates: start: 2024
  5. MOUNJARO [Suspect]
     Active Substance: TIRZEPATIDE
     Indication: Blood glucose increased
  6. MOUNJARO [Suspect]
     Active Substance: TIRZEPATIDE
     Indication: Blood glucose increased
  7. MOUNJARO [Suspect]
     Active Substance: TIRZEPATIDE
     Indication: Blood glucose increased
  8. MOUNJARO [Suspect]
     Active Substance: TIRZEPATIDE
     Indication: Blood glucose increased

REACTIONS (3)
  - Pain [Recovered/Resolved]
  - Skin burning sensation [Recovered/Resolved]
  - Fatigue [Recovered/Resolved]

NARRATIVE: CASE EVENT DATE: 20240101
